FAERS Safety Report 10792216 (Version 1)
Quarter: 2015Q1

REPORT INFORMATION
  Report Type: Spontaneous
  Country: TW (occurrence: None)
  Receive Date: 20150211
  Receipt Date: 20150211
  Transmission Date: 20150721
  Serious: Yes (Hospitalization, Other)
  Sender: FDA-Public Use
  Company Number: 2015/004

PATIENT
  Age: 28 Year
  Sex: Female

DRUGS (2)
  1. HALOPERIDOL. [Suspect]
     Active Substance: HALOPERIDOL
     Indication: SCHIZOPHRENIA
  2. OLANZAPINE (NO PREF. NAME) [Suspect]
     Active Substance: OLANZAPINE
     Indication: SCHIZOPHRENIA

REACTIONS (14)
  - Social avoidant behaviour [None]
  - Anxiety [None]
  - Aggression [None]
  - Restlessness [None]
  - Autism [None]
  - Irritability [None]
  - Oral discomfort [None]
  - Compulsions [None]
  - Obsessive thoughts [None]
  - Dental caries [None]
  - Psychomotor hyperactivity [None]
  - Speech disorder [None]
  - Dental pulp disorder [None]
  - Noninfective gingivitis [None]
